FAERS Safety Report 8383797-8 (Version None)
Quarter: 2012Q1

REPORT INFORMATION
  Report Type: 
  Country: None (occurrence: None)
  Receive Date: 20120323
  Receipt Date: 20110301
  Transmission Date: 20120608
  Serious: Yes (Other)
  Sender: FDA-Public Use
  Company Number: 163-21880-11030596

PATIENT
  Age: 74 Year
  Sex: Male
  Weight: 70.7611 kg

DRUGS (4)
  1. REVLIMID [Suspect]
     Indication: MULTIPLE MYELOMA
     Dosage: 20 MG, DAILY, PO 15 MG, DAILY FOR 14 DAYS, PO
     Route: 048
     Dates: start: 20110301
  2. REVLIMID [Suspect]
     Indication: MULTIPLE MYELOMA
     Dosage: 20 MG, DAILY, PO 15 MG, DAILY FOR 14 DAYS, PO
     Route: 048
     Dates: start: 20110114, end: 20110301
  3. VELCADE [Suspect]
     Indication: MULTIPLE MYELOMA
     Dosage: 0.73 MG/M2, WEEKLY
     Dates: start: 20110125
  4. ASPIRIN [Concomitant]

REACTIONS (1)
  - THROMBOCYTOPENIA [None]
